FAERS Safety Report 14891336 (Version 1)
Quarter: 2018Q2

REPORT INFORMATION
  Report Type: Spontaneous
  Country: US (occurrence: US)
  Receive Date: 20180426
  Receipt Date: 20180426
  Transmission Date: 20180711
  Serious: No
  Sender: FDA-Public Use
  Company Number: None

PATIENT
  Sex: Male

DRUGS (10)
  1. AMLODIPINE [Concomitant]
     Active Substance: AMLODIPINE BESYLATE
  2. OCALIVA [Suspect]
     Active Substance: OBETICHOLIC ACID
     Indication: HYPERTENSION
     Route: 048
     Dates: start: 20171228
  3. ALL OPURINOL [Concomitant]
  4. BUMETANIDE. [Concomitant]
     Active Substance: BUMETANIDE
  5. CHLORHEX [Concomitant]
  6. MAGOX [Concomitant]
  7. RENVELA [Concomitant]
     Active Substance: SEVELAMER CARBONATE
  8. ATORVASTATIN [Concomitant]
     Active Substance: ATORVASTATIN
  9. LIDO PRILOCN CRE [Concomitant]
  10. RENA VITE RS [Concomitant]

REACTIONS (2)
  - Drug dose omission [None]
  - Stomatitis [None]
